FAERS Safety Report 13100296 (Version 3)
Quarter: 2018Q3

REPORT INFORMATION
  Report Type: Report from Study
  Country: JP (occurrence: JP)
  Receive Date: 20170110
  Receipt Date: 20180831
  Transmission Date: 20181010
  Serious: Yes (Life-Threatening, Other)
  Sender: FDA-Public Use
  Company Number: JP-B.I. PHARMACEUTICALS,INC./RIDGEFIELD-2017-NB-000046

PATIENT
  Age: 67 Year
  Sex: Male
  Weight: 59.4 kg

DRUGS (1)
  1. PRAZAXA [Suspect]
     Active Substance: DABIGATRAN ETEXILATE MESYLATE
     Indication: ATRIAL FIBRILLATION
     Route: 048
     Dates: end: 20161229

REACTIONS (6)
  - Hyperbilirubinaemia [Unknown]
  - Aortic dissection [Recovered/Resolved]
  - Blood test abnormal [Unknown]
  - Hepatic function abnormal [Unknown]
  - Arterial occlusive disease [Unknown]
  - Urinary tract infection [Unknown]

NARRATIVE: CASE EVENT DATE: 20161230
